FAERS Safety Report 22523957 (Version 1)
Quarter: 2023Q2

REPORT INFORMATION
  Report Type: Spontaneous
  Country: US (occurrence: US)
  Receive Date: 20230606
  Receipt Date: 20230606
  Transmission Date: 20230722
  Serious: No
  Sender: FDA-Public Use
  Company Number: US-VIIV HEALTHCARE LIMITED-US2023AMR077231

PATIENT
  Sex: Male

DRUGS (2)
  1. RUKOBIA [Suspect]
     Active Substance: FOSTEMSAVIR TROMETHAMINE
     Indication: Product used for unknown indication
     Dosage: 600 MG, QD
     Route: 048
     Dates: start: 20220713, end: 202304
  2. RUKOBIA [Suspect]
     Active Substance: FOSTEMSAVIR TROMETHAMINE
     Dosage: 600 MG, BID
     Route: 048
     Dates: start: 202304, end: 20230528

REACTIONS (6)
  - Asthenia [Recovering/Resolving]
  - Dyspnoea [Recovering/Resolving]
  - Anxiety [Recovering/Resolving]
  - Panic attack [Recovering/Resolving]
  - Condition aggravated [Recovering/Resolving]
  - Incorrect dose administered [Unknown]
